FAERS Safety Report 18893882 (Version 1)
Quarter: 2021Q1

REPORT INFORMATION
  Report Type: Spontaneous
  Country: US (occurrence: US)
  Receive Date: 20210215
  Receipt Date: 20210215
  Transmission Date: 20210420
  Serious: Yes (Other)
  Sender: FDA-Public Use
  Company Number: US-PURDUE-USA-2020-0208419

PATIENT
  Sex: Male

DRUGS (1)
  1. OXYCONTIN [Suspect]
     Active Substance: OXYCODONE HYDROCHLORIDE
     Indication: PRODUCT USED FOR UNKNOWN INDICATION
     Dosage: UNK
     Route: 048

REACTIONS (18)
  - Oedema peripheral [Unknown]
  - Liver function test abnormal [Unknown]
  - Migraine [Unknown]
  - Memory impairment [Unknown]
  - White blood cell disorder [Unknown]
  - Libido disorder [Unknown]
  - Dysuria [Unknown]
  - Pain [Unknown]
  - Hyperhidrosis [Unknown]
  - Insomnia [Unknown]
  - Arthralgia [Unknown]
  - Major depression [Unknown]
  - Loss of libido [Unknown]
  - Emotional distress [Unknown]
  - Dry mouth [Unknown]
  - Hormone level abnormal [Unknown]
  - Agitation [Unknown]
  - Anxiety [Unknown]
